FAERS Safety Report 9150067 (Version 1)
Quarter: 2013Q1

REPORT INFORMATION
  Report Type: Spontaneous
  Country: US (occurrence: None)
  Receive Date: 20130304
  Receipt Date: 20130304
  Transmission Date: 20140127
  Serious: Yes (Other)
  Sender: FDA-Public Use
  Company Number: None

PATIENT
  Age: 44 Year
  Sex: Female
  Weight: 66.68 kg

DRUGS (1)
  1. GABAPENTIN [Suspect]
     Indication: FIBROMYALGIA
     Dosage: 5 CAPS BY MOUTH 3 TIMES A DAY PO
     Route: 048
     Dates: start: 20130218, end: 20130228

REACTIONS (3)
  - Drug ineffective [None]
  - Headache [None]
  - Product substitution issue [None]
